FAERS Safety Report 26091006 (Version 1)
Quarter: 2025Q4

REPORT INFORMATION
  Report Type: Spontaneous
  Country: US (occurrence: US)
  Receive Date: 20251126
  Receipt Date: 20251126
  Transmission Date: 20260118
  Serious: Yes (Other)
  Sender: SANOFI AVENTIS
  Company Number: US-SA-2025SA351886

PATIENT
  Age: 69 Year
  Sex: Female
  Weight: 47.73 kg

DRUGS (14)
  1. DUPIXENT [Suspect]
     Active Substance: DUPILUMAB
     Indication: Chronic obstructive pulmonary disease
     Dosage: 300MG,QOW
     Route: 058
  2. NUCALA [Concomitant]
     Active Substance: MEPOLIZUMAB
  3. PROLIA [Concomitant]
     Active Substance: DENOSUMAB
  4. VITAMINS [Concomitant]
     Active Substance: VITAMINS
  5. OXYGEN [Concomitant]
     Active Substance: OXYGEN
  6. ALBUTEROL SULFATE [Concomitant]
     Active Substance: ALBUTEROL SULFATE
  7. NAC [ACETYLCYSTEINE;SELENOMETHIONINE;SODIUM MOLYBDATE] [Concomitant]
  8. VITAMIN D3 [Concomitant]
     Active Substance: CHOLECALCIFEROL
  9. MAGNESIUM [Concomitant]
     Active Substance: MAGNESIUM
  10. CALCIUM [Concomitant]
     Active Substance: CALCIUM
  11. NITROGLYCERIN [Concomitant]
     Active Substance: NITROGLYCERIN
  12. ATORVASTATIN CALCIUM [Concomitant]
     Active Substance: ATORVASTATIN CALCIUM
  13. ARNUITY ELLIPTA [Concomitant]
     Active Substance: FLUTICASONE FUROATE
  14. STIOLTO RESPIMAT [Concomitant]
     Active Substance: OLODATEROL HYDROCHLORIDE\TIOTROPIUM BROMIDE MONOHYDRATE
     Dosage: UNK

REACTIONS (3)
  - Neuropathy peripheral [Recovering/Resolving]
  - Arthritis [Recovering/Resolving]
  - Sleep disorder due to a general medical condition [Recovering/Resolving]
